FAERS Safety Report 17433097 (Version 1)
Quarter: 2020Q1

REPORT INFORMATION
  Report Type: Spontaneous
  Country: FR (occurrence: FR)
  Receive Date: 20200219
  Receipt Date: 20200219
  Transmission Date: 20200409
  Serious: Yes (Hospitalization)
  Sender: FDA-Public Use
  Company Number: FR-TEVA-2020-FR-1187780

PATIENT
  Age: 89 Year
  Sex: Male
  Weight: 70 kg

DRUGS (10)
  1. ENTRESTO [Concomitant]
     Active Substance: SACUBITRIL\VALSARTAN
  2. IBUPROFENE [Suspect]
     Active Substance: IBUPROFEN
     Indication: PRODUCT USED FOR UNKNOWN INDICATION
     Dosage: 1200 MG
     Route: 048
     Dates: end: 20200120
  3. BISOCE [Concomitant]
     Active Substance: BISOPROLOL
  4. RHINOTROPHYL [Concomitant]
     Active Substance: FRAMYCETIN\MONOETHANOLAMINE
  5. CALYPTOL [Concomitant]
  6. FUROSEMIDE. [Concomitant]
     Active Substance: FUROSEMIDE
  7. REPAGLINIDE. [Concomitant]
     Active Substance: REPAGLINIDE
  8. CEFTRIAXONE BASE [Concomitant]
     Active Substance: CEFTRIAXONE
  9. LERCAN [Concomitant]
     Active Substance: LERCANIDIPINE
  10. TUSSIPAX [Concomitant]

REACTIONS (2)
  - Shock haemorrhagic [Recovering/Resolving]
  - Haematemesis [Recovered/Resolved]

NARRATIVE: CASE EVENT DATE: 20200120
